FAERS Safety Report 7779207-1 (Version None)
Quarter: 2011Q3

REPORT INFORMATION
  Report Type: 
  Country: None (occurrence: None)
  Receive Date: 20110926
  Receipt Date: 20110920
  Transmission Date: 20111222
  Serious: Yes (Hospitalization)
  Sender: FDA-Public Use
  Company Number: US-AMGEN-USASP2011045819

PATIENT
  Age: 52 Year
  Sex: Male

DRUGS (1)
  1. ENBREL [Suspect]
     Indication: RHEUMATOID ARTHRITIS
     Dosage: 50 MG, QWK
     Dates: start: 20090401

REACTIONS (11)
  - RED BLOOD CELL COUNT DECREASED [None]
  - CHOLELITHIASIS [None]
  - WHITE BLOOD CELL COUNT DECREASED [None]
  - ABDOMINAL PAIN [None]
  - PERICARDIAL EFFUSION [None]
  - PYREXIA [None]
  - RHEUMATOID ARTHRITIS [None]
  - HEPATITIS C [None]
  - DYSPNOEA [None]
  - CHEST DISCOMFORT [None]
  - CHEST PAIN [None]
